FAERS Safety Report 5879949-9 (Version None)
Quarter: 2008Q3

REPORT INFORMATION
  Report Type: 
  Country: None (occurrence: None)
  Receive Date: 20080912
  Receipt Date: 20080904
  Transmission Date: 20090109
  Serious: Yes (Other)
  Sender: FDA-Public Use
  Company Number: GB-ALLERGAN-0811155US

PATIENT
  Age: 69 Year
  Sex: Male

DRUGS (4)
  1. GANFORT [Suspect]
     Indication: GLAUCOMA
     Dosage: 1 GTT, QD
     Route: 047
     Dates: start: 20080101
  2. FML [Suspect]
     Indication: DRUG USE FOR UNKNOWN INDICATION
     Dosage: 1 GTT, BID
     Route: 047
     Dates: start: 20071001
  3. VOLTAROL RETARD [Concomitant]
  4. GLUCOSAMINE SULFATE W/CHONDROITIN [Concomitant]
     Indication: OSTEOARTHRITIS

REACTIONS (1)
  - RHEUMATOID ARTHRITIS [None]
